FAERS Safety Report 7929781 (Version 8)
Quarter: 2014Q2

REPORT INFORMATION
  Report Type: Report from Study
  Country: US (occurrence: US)
  Receive Date: 20110504
  Receipt Date: 20140610
  Transmission Date: 20141212
  Serious: Yes (Hospitalization)
  Sender: FDA-Public Use
  Company Number: US-BRISTOL-MYERS SQUIBB COMPANY-15714421

PATIENT
  Age: 85 Year
  Sex: Male

DRUGS (12)
  1. IPILIMUMAB [Suspect]
     Indication: MALIGNANT MELANOMA
     Dosage: 10MG/KG?NO OF COURSES: 15
     Route: 042
     Dates: start: 20080101, end: 20110406
  2. FOLIC ACID [Concomitant]
     Route: 048
  3. SENNA [Concomitant]
     Dosage: 1DF=1TAB
     Route: 048
  4. LYRICA [Concomitant]
     Route: 048
  5. FLUCONAZOLE [Concomitant]
     Route: 048
  6. CIPROFLOXACIN [Concomitant]
     Dosage: Q12 HRS
     Route: 048
  7. PREDNISONE [Concomitant]
     Dosage: 70MG,60MG,50MG,40MG,30MG,20MG,10MG,5MG FOR 7 DAYS
     Route: 048
  8. CRESTOR [Concomitant]
  9. NIASPAN [Concomitant]
  10. PLAVIX [Concomitant]
  11. LISINOPRIL [Concomitant]
  12. MAGNESIUM OXIDE [Concomitant]

REACTIONS (3)
  - Thrombocytopenia [Recovered/Resolved]
  - Urinary tract infection [Recovered/Resolved with Sequelae]
  - Mucosal inflammation [Recovered/Resolved with Sequelae]
